FAERS Safety Report 9345685 (Version 2)
Quarter: 2013Q3

REPORT INFORMATION
  Report Type: Report from Study
  Country: BR (occurrence: BR)
  Receive Date: 20130613
  Receipt Date: 20130715
  Transmission Date: 20140515
  Serious: Yes (Other)
  Sender: FDA-Public Use
  Company Number: PHHY2013BR059795

PATIENT
  Sex: Female
  Weight: 80 kg

DRUGS (7)
  1. SANDOSTATIN LAR [Suspect]
     Indication: BRAIN NEOPLASM
     Dosage: 30 MG, UNK
     Dates: start: 2004
  2. AAS [Concomitant]
     Dosage: 3 TO 4 YEARS AGO
  3. AMLODIPINE [Concomitant]
     Dosage: 5 MG, 5 TO 6 YEARS AGO
  4. ENALAPRIL [Concomitant]
     Dosage: 5 TO 6 YEARS AGO
  5. OMEPRAZOLE [Concomitant]
     Dosage: 20 MG, 2 YEARS AGO
  6. SIMVASTATIN [Concomitant]
     Dosage: 5 TO 6 YEARS AGO
  7. VITAMIN B3 [Concomitant]
     Dosage: 3 YEARS AGO

REACTIONS (6)
  - Blood cholesterol abnormal [Unknown]
  - Diabetes mellitus [Unknown]
  - Confusional state [Recovering/Resolving]
  - Memory impairment [Recovering/Resolving]
  - Body height decreased [Unknown]
  - Asthenia [Unknown]
